FAERS Safety Report 20644383 (Version 1)
Quarter: 2022Q1

REPORT INFORMATION
  Report Type: Spontaneous
  Country: US (occurrence: US)
  Receive Date: 20220328
  Receipt Date: 20220328
  Transmission Date: 20220423
  Serious: No
  Sender: FDA-Public Use
  Company Number: US-SANOFI-01021363

PATIENT
  Age: 31 Year
  Sex: Female

DRUGS (1)
  1. LANTUS SOLOSTAR [Suspect]
     Active Substance: INSULIN GLARGINE
     Indication: Type 1 diabetes mellitus
     Dosage: DRUG STRUCTURE DOSAGE : 10 U Q AM AND 14 U Q PM DRUG INTERVAL DOSAGE : BID DRUG TREATMENT DURATION:S

REACTIONS (1)
  - Inappropriate schedule of product administration [Unknown]
